FAERS Safety Report 25323654 (Version 1)
Quarter: 2025Q2

REPORT INFORMATION
  Report Type: Spontaneous
  Country: CN (occurrence: CN)
  Receive Date: 20250516
  Receipt Date: 20250516
  Transmission Date: 20250716
  Serious: Yes (Hospitalization)
  Sender: BAYER HEALTHCARE PHARMACEUTICALS INC.
  Company Number: CN-BAYER-2025A066112

PATIENT
  Age: 67 Year
  Sex: Female
  Weight: 40 kg

DRUGS (3)
  1. AVELOX [Suspect]
     Active Substance: MOXIFLOXACIN HYDROCHLORIDE
     Indication: Tuberculosis
     Dosage: 0.4 G, QD
     Route: 041
     Dates: start: 20250430, end: 20250508
  2. RIFAPENTINE [Concomitant]
     Active Substance: RIFAPENTINE
     Indication: Tuberculosis
     Route: 048
     Dates: start: 20250430, end: 20250515
  3. ISONIAZID [Concomitant]
     Active Substance: ISONIAZID
     Indication: Tuberculosis
     Dosage: 0.3 G, QD
     Route: 048
     Dates: start: 20250430, end: 20250515

REACTIONS (6)
  - Mental disorder [Recovered/Resolved]
  - Abnormal behaviour [Recovered/Resolved]
  - Disorganised speech [Recovered/Resolved]
  - Incoherent [Recovered/Resolved]
  - Product prescribing issue [None]
  - Product use in unapproved indication [None]

NARRATIVE: CASE EVENT DATE: 20250430
